FAERS Safety Report 23859441 (Version 7)
Quarter: 2024Q4

REPORT INFORMATION
  Report Type: Report from Study
  Country: US (occurrence: US)
  Receive Date: 20240515
  Receipt Date: 20241004
  Transmission Date: 20250115
  Serious: Yes (Hospitalization, Other)
  Sender: DECIPHERA PHARMACEUTICALS
  Company Number: US-DECIPHERA PHARMACEUTICALS LLC-2024US000394

PATIENT
  Age: 68 Year
  Sex: Male
  Weight: 77 kg

DRUGS (2)
  1. QINLOCK [Suspect]
     Active Substance: RIPRETINIB
     Indication: Gastrointestinal stromal tumour
     Dosage: 150 MILLIGRAM, QD
     Route: 048
     Dates: start: 20240202, end: 202408
  2. QINLOCK [Suspect]
     Active Substance: RIPRETINIB
     Dosage: 150 MILLIGRAM, QD
     Route: 048
     Dates: start: 202409

REACTIONS (6)
  - Intervertebral disc operation [Unknown]
  - Oropharyngeal pain [Unknown]
  - Hyperkeratosis [Unknown]
  - Rash [Unknown]
  - Seasonal allergy [Recovered/Resolved]
  - Fatigue [Not Recovered/Not Resolved]

NARRATIVE: CASE EVENT DATE: 20240101
